FAERS Safety Report 10147081 (Version 1)
Quarter: 2014Q2

REPORT INFORMATION
  Report Type: Spontaneous
  Country: US (occurrence: US)
  Receive Date: 20140501
  Receipt Date: 20140501
  Transmission Date: 20141212
  Serious: No
  Sender: FDA-Public Use
  Company Number: US-PFIZER INC-2014116381

PATIENT
  Age: 18 Year
  Sex: Male
  Weight: 58.96 kg

DRUGS (2)
  1. VENLAFAXINE [Suspect]
     Indication: SOCIAL PHOBIA
     Dosage: 37.5 MG, DAILY
     Dates: start: 20140108, end: 20140212
  2. VENLAFAXINE [Suspect]
     Dosage: 75 MG, DAILY
     Dates: start: 20140213, end: 201403

REACTIONS (1)
  - Erectile dysfunction [Unknown]
